FAERS Safety Report 16769862 (Version 2)
Quarter: 2019Q3

REPORT INFORMATION
  Report Type: Spontaneous
  Country: DE (occurrence: DE)
  Receive Date: 20190904
  Receipt Date: 20190926
  Transmission Date: 20191005
  Serious: Yes (Hospitalization)
  Sender: FDA-Public Use
  Company Number: DE-ROCHE-2396422

PATIENT
  Age: 55 Year
  Sex: Male

DRUGS (3)
  1. FENISTIL [Concomitant]
     Active Substance: DIMETHINDENE
     Dosage: 2 X 1ML
     Route: 042
     Dates: start: 20190826, end: 20190826
  2. OCREVUS [Suspect]
     Active Substance: OCRELIZUMAB
     Indication: PRIMARY PROGRESSIVE MULTIPLE SCLEROSIS
     Route: 042
     Dates: start: 20180813, end: 20190826
  3. METHYLPRED [Concomitant]
     Active Substance: METHYLPREDNISOLONE
     Dosage: ONCE
     Route: 042
     Dates: start: 20190826, end: 20190826

REACTIONS (2)
  - Hypertension [Recovered/Resolved]
  - Tachycardia [Recovered/Resolved]

NARRATIVE: CASE EVENT DATE: 20190826
